FAERS Safety Report 9300118 (Version 1)
Quarter: 2013Q2

REPORT INFORMATION
  Report Type: Spontaneous
  Country: CH (occurrence: CH)
  Receive Date: 20130521
  Receipt Date: 20130521
  Transmission Date: 20140414
  Serious: Yes (Other)
  Sender: FDA-Public Use
  Company Number: CH-MERCK-1305CHE010436

PATIENT
  Age: 9 Year
  Sex: Male

DRUGS (3)
  1. AERIUS [Suspect]
     Indication: RHINITIS ALLERGIC
     Dosage: 5 MG, PER DAY
     Route: 048
     Dates: start: 201304, end: 201304
  2. AERIUS [Suspect]
     Dosage: 2.5 MG, PER DAY
     Route: 048
     Dates: start: 201304
  3. AERIUS [Suspect]
     Dosage: UNK
     Route: 048

REACTIONS (1)
  - Urinary retention [Recovered/Resolved]
